FAERS Safety Report 15781679 (Version 1)
Quarter: 2018Q4

REPORT INFORMATION
  Report Type: Spontaneous
  Country: US (occurrence: US)
  Receive Date: 20181230
  Receipt Date: 20181230
  Transmission Date: 20190205
  Serious: No
  Sender: FDA-Public Use
  Company Number: None

PATIENT
  Age: 63 Year
  Sex: Female
  Weight: 63.45 kg

DRUGS (2)
  1. CBD OIL [Suspect]
     Active Substance: CANNABIDIOL\HERBALS
     Indication: OSTEOARTHRITIS
     Route: 060
     Dates: start: 20181203, end: 20181230
  2. CBD OIL [Suspect]
     Active Substance: CANNABIDIOL\HERBALS
     Indication: FIBROMYALGIA
     Route: 060
     Dates: start: 20181203, end: 20181230

REACTIONS (3)
  - Restless legs syndrome [None]
  - Hot flush [None]
  - Pain in extremity [None]
